FAERS Safety Report 11168013 (Version 2)
Quarter: 2015Q2

REPORT INFORMATION
  Report Type: Report from Study
  Country: GB (occurrence: GB)
  Receive Date: 20150605
  Receipt Date: 20150623
  Transmission Date: 20150821
  Serious: Yes (Hospitalization)
  Sender: FDA-Public Use
  Company Number: GB-BAYER-2015-023859

PATIENT
  Age: 64 Year
  Sex: Male
  Weight: 97.4 kg

DRUGS (25)
  1. MORPHINE [Concomitant]
     Active Substance: MORPHINE
     Indication: METASTATIC PAIN
     Dosage: DAILY DOSE 10 MG
     Route: 048
     Dates: start: 201409
  2. TRAMADOL [Concomitant]
     Active Substance: TRAMADOL
     Indication: METASTASES TO BONE
  3. ZOLADEX [Concomitant]
     Active Substance: GOSERELIN ACETATE
     Indication: PROSTATE CANCER
     Dosage: DAILY DOSE 10.8 MG
     Route: 058
     Dates: start: 20140612
  4. TAMSULOSIN [Concomitant]
     Active Substance: TAMSULOSIN
     Indication: MICTURITION URGENCY
     Dosage: DAILY DOSE 400 MG
     Route: 048
     Dates: start: 20150113
  5. TAMSULOSIN [Concomitant]
     Active Substance: TAMSULOSIN
     Indication: NOCTURIA
  6. RADIUM-223 DICHLORIDE [Suspect]
     Active Substance: RADIUM RA-223 DICHLORIDE
     Indication: PROSTATE CANCER STAGE IV
     Dosage: 50 KBQ/KG (WEEK 8)
     Route: 042
     Dates: start: 20150212, end: 20150212
  7. NAPROXEN. [Concomitant]
     Active Substance: NAPROXEN
     Indication: METASTATIC PAIN
     Dosage: DAILY DOSE 500 MG
     Route: 048
     Dates: start: 201406
  8. MORPHINE [Concomitant]
     Active Substance: MORPHINE
     Indication: METASTATIC PAIN
     Dosage: 90 MG, BID
     Route: 048
     Dates: start: 20150312
  9. PREGABALIN. [Concomitant]
     Active Substance: PREGABALIN
     Indication: METASTATIC PAIN
     Dosage: DAILY DOSE 25 MG
     Route: 048
     Dates: start: 201501
  10. DEXAMETHASONE. [Concomitant]
     Active Substance: DEXAMETHASONE
     Indication: PAIN
     Dosage: DAILY DOSE 8 MG
     Route: 048
     Dates: start: 201410, end: 201501
  11. CYPROTERONE ACETATE [Concomitant]
     Active Substance: CYPROTERONE ACETATE
     Indication: NIGHT SWEATS
     Dosage: 50 MG, QD
     Route: 048
     Dates: start: 20150108
  12. GELCLAIR [Concomitant]
     Indication: DRY MOUTH
     Dosage: 1 SACHET
     Route: 048
     Dates: start: 20150312
  13. TRAMADOL [Concomitant]
     Active Substance: TRAMADOL
     Indication: METASTATIC PAIN
     Dosage: DAILY DOSE 50 MG
     Route: 048
     Dates: start: 201307
  14. RADIUM-223 DICHLORIDE [Suspect]
     Active Substance: RADIUM RA-223 DICHLORIDE
     Indication: PROSTATE CANCER STAGE IV
     Dosage: 50 KBQ/KG (WEEK 12)
     Route: 042
     Dates: start: 20150312, end: 20150312
  15. AMLODIPINE [Concomitant]
     Active Substance: AMLODIPINE BESYLATE
     Indication: ESSENTIAL HYPERTENSION
     Dosage: DAILY DOSE 5 MG
     Route: 048
     Dates: start: 20110201
  16. MORPHINE [Concomitant]
     Active Substance: MORPHINE
     Indication: METASTASES TO BONE
     Dosage: 60 MG, BID
     Route: 048
     Dates: end: 20150312
  17. TAMSULOSIN [Concomitant]
     Active Substance: TAMSULOSIN
     Indication: POLLAKIURIA
     Dosage: DAILY DOSE 400 MG
     Route: 048
     Dates: start: 20130113
  18. RADIUM-223 DICHLORIDE [Suspect]
     Active Substance: RADIUM RA-223 DICHLORIDE
     Indication: PROSTATE CANCER STAGE IV
     Dosage: 50 KBQ/KG (WEEK 0)
     Route: 042
     Dates: start: 20141219, end: 20141219
  19. RADIUM-223 DICHLORIDE [Suspect]
     Active Substance: RADIUM RA-223 DICHLORIDE
     Indication: METASTASES TO BONE
     Dosage: 50 KBQ/KG (WEEK 4)
     Route: 042
     Dates: start: 20150115, end: 20150115
  20. PREGABALIN. [Concomitant]
     Active Substance: PREGABALIN
     Indication: METASTASES TO BONE
  21. AMITRIPTYLINE [Concomitant]
     Active Substance: AMITRIPTYLINE
     Indication: METASTATIC PAIN
     Dosage: DAILY DOSE 10 MG
     Route: 048
     Dates: start: 20141216
  22. AMITRIPTYLINE [Concomitant]
     Active Substance: AMITRIPTYLINE
     Indication: METASTASES TO BONE
  23. CANDESARTAN [Concomitant]
     Active Substance: CANDESARTAN
     Indication: ESSENTIAL HYPERTENSION
     Dosage: DAILY DOSE 8 MG
     Route: 048
     Dates: start: 20110120
  24. NAPROXEN. [Concomitant]
     Active Substance: NAPROXEN
     Indication: METASTASES TO BONE
  25. AMOXICILLIN. [Concomitant]
     Active Substance: AMOXICILLIN
     Indication: LOWER RESPIRATORY TRACT INFECTION
     Dosage: 500 MG, TID
     Route: 048
     Dates: start: 20150211, end: 20150218

REACTIONS (5)
  - Lower respiratory tract infection [Recovered/Resolved]
  - Anaemia [Recovered/Resolved with Sequelae]
  - Anaemia [Recovered/Resolved with Sequelae]
  - Lacunar infarction [Recovered/Resolved]
  - Bone pain [Recovered/Resolved with Sequelae]

NARRATIVE: CASE EVENT DATE: 20150116
